FAERS Safety Report 16679766 (Version 2)
Quarter: 2019Q3

REPORT INFORMATION
  Report Type: Spontaneous
  Country: US (occurrence: US)
  Receive Date: 20190807
  Receipt Date: 20190918
  Transmission Date: 20191004
  Serious: No
  Sender: FDA-Public Use
  Company Number: US-TEVA-2019-US-1088121

PATIENT

DRUGS (1)
  1. BUPROPION XL [Suspect]
     Active Substance: BUPROPION
     Route: 065

REACTIONS (2)
  - Alopecia [Recovered/Resolved]
  - Tremor [Recovered/Resolved]
